FAERS Safety Report 23368727 (Version 1)
Quarter: 2024Q1

REPORT INFORMATION
  Report Type: Report from Study
  Country: FR (occurrence: FR)
  Receive Date: 20240105
  Receipt Date: 20240105
  Transmission Date: 20240410
  Serious: Yes (Other)
  Sender: FDA-Public Use
  Company Number: FR-Merck Healthcare KGaA-2023496809

PATIENT
  Age: 33 Year
  Sex: Female

DRUGS (2)
  1. GONAL-F [Suspect]
     Active Substance: FOLLITROPIN
     Indication: Product used for unknown indication
  2. GONAL-F [Suspect]
     Active Substance: FOLLITROPIN

REACTIONS (2)
  - Uterine polyp [Unknown]
  - Therapeutic response decreased [Unknown]
